FAERS Safety Report 6763027-0 (Version None)
Quarter: 2010Q2

REPORT INFORMATION
  Report Type: 
  Country: None (occurrence: None)
  Receive Date: 20100608
  Receipt Date: 20100608
  Transmission Date: 20101027
  Serious: Yes (Hospitalization)
  Sender: FDA-Public Use
  Company Number: None

PATIENT
  Age: 63 Year
  Sex: Male
  Weight: 61 kg

DRUGS (9)
  1. BEVACIZUMAB [Suspect]
     Indication: OESOPHAGEAL CANCER METASTATIC
     Dosage: 10MG/KGD1
     Dates: start: 20100426, end: 20100521
  2. DOCETAXEL [Suspect]
     Indication: OESOPHAGEAL CANCER METASTATIC
     Dosage: 30MG/M2D1D8
     Dates: start: 20100423, end: 20100521
  3. CISPLATIN [Suspect]
     Indication: OESOPHAGEAL CANCER METASTATIC
     Dosage: 30MG/M2D1D8
     Dates: start: 20100423, end: 20100521
  4. IRINOTECAN [Suspect]
     Indication: OESOPHAGEAL CANCER METASTATIC
     Dosage: 65MG/M2D1D8
     Dates: start: 20100423, end: 20100521
  5. TOPROL-XL [Concomitant]
  6. BABY ASPIRN [Concomitant]
  7. CENTRUM MULTIVITAMINS [Concomitant]
  8. FISH OIL [Concomitant]
  9. HEEL BALM [Concomitant]

REACTIONS (4)
  - CHILLS [None]
  - HEADACHE [None]
  - PYREXIA [None]
  - TOOTH DISORDER [None]
